FAERS Safety Report 21229851 (Version 2)
Quarter: 2022Q3

REPORT INFORMATION
  Report Type: Spontaneous
  Country: DE (occurrence: DE)
  Receive Date: 20220818
  Receipt Date: 20220902
  Transmission Date: 20221027
  Serious: Yes (Other)
  Sender: FDA-Public Use
  Company Number: DE-TEVA-2022-DE-2064253

PATIENT
  Sex: Female

DRUGS (5)
  1. DOCETAXEL [Suspect]
     Active Substance: DOCETAXEL
     Indication: Product used for unknown indication
     Route: 065
  2. PACLITAXEL [Suspect]
     Active Substance: PACLITAXEL
     Indication: Product used for unknown indication
     Route: 065
  3. TRIAMCINOLONE [Suspect]
     Active Substance: TRIAMCINOLONE
     Indication: Product used for unknown indication
     Route: 065
  4. MEPIVACAINE HYDROCHLORIDE [Suspect]
     Active Substance: MEPIVACAINE HYDROCHLORIDE
     Indication: Product used for unknown indication
     Route: 065
  5. PEG 3350 [Suspect]
     Active Substance: POLYETHYLENE GLYCOL 3350
     Indication: Drug provocation test
     Dosage: TOLERATED UPTO 13G OF PEG 3350
     Route: 048
     Dates: start: 2021, end: 2021

REACTIONS (12)
  - Pruritus [Unknown]
  - Nausea [Unknown]
  - Depressed level of consciousness [Unknown]
  - Rash [Unknown]
  - Blood pressure increased [Unknown]
  - Feeling hot [Unknown]
  - Urticaria [Unknown]
  - Paraesthesia [Unknown]
  - Chills [Unknown]
  - Abdominal pain [Unknown]
  - Allergic reaction to excipient [Unknown]
  - Drug hypersensitivity [Unknown]

NARRATIVE: CASE EVENT DATE: 20210101
